FAERS Safety Report 4279735-X (Version None)
Quarter: 2004Q1

REPORT INFORMATION
  Report Type: 
  Country: None (occurrence: None)
  Receive Date: 20040123
  Receipt Date: 20040114
  Transmission Date: 20041129
  Serious: Yes (Hospitalization)
  Sender: FDA-Public Use
  Company Number: 200400781

PATIENT
  Age: 8 Year
  Sex: Male

DRUGS (4)
  1. IMODIUM [Suspect]
     Dosage: PO
     Route: 048
     Dates: start: 20031227, end: 20031229
  2. CEFACLOR [Concomitant]
  3. D-CHLORPHENIRAMINE MALEATE [Concomitant]
  4. MEQUITAZINE [Concomitant]

REACTIONS (3)
  - ENCEPHALOPATHY [None]
  - TOXIC INDUCED ENCEPHALOPATHY [None]
  - VIRAL INFECTION [None]
